FAERS Safety Report 5523885-4 (Version None)
Quarter: 2007Q4

REPORT INFORMATION
  Report Type: 
  Country: None (occurrence: None)
  Receive Date: 20071121
  Receipt Date: 20071115
  Transmission Date: 20080405
  Serious: Yes (Hospitalization)
  Sender: FDA-Public Use
  Company Number: US-SHR-US-2007-027109

PATIENT
  Age: 54 Year
  Sex: Male

DRUGS (2)
  1. BETASERON [Suspect]
     Indication: MULTIPLE SCLEROSIS
     Dosage: 4 MIU, EVERY OTHER DAY
     Route: 058
     Dates: start: 20070703
  2. BETASERON [Suspect]
     Dosage: 6 MIU, EVERY 2D
     Route: 058

REACTIONS (3)
  - CHEST PAIN [None]
  - CORONARY ARTERY OCCLUSION [None]
  - DYSPNOEA [None]
